FAERS Safety Report 8383505 (Version 2)
Quarter: 2016Q1

REPORT INFORMATION
  Report Type: Report from Study
  Country: US (occurrence: US)
  Receive Date: 20120130
  Receipt Date: 20160211
  Transmission Date: 20160526
  Serious: Yes (Death)
  Sender: FDA-Public Use
  Company Number: US-ROCHE-1034037

PATIENT
  Sex: Male

DRUGS (2)
  1. XELODA [Suspect]
     Active Substance: CAPECITABINE
     Indication: PRODUCT USED FOR UNKNOWN INDICATION
     Dosage: 4 TAB TWICE DAILY 2 WEEKS ON 1 WEEK OFF
     Route: 048
  2. XELODA [Suspect]
     Active Substance: CAPECITABINE
     Dosage: 500 MG 10 TABLET TWICE DAILY FOR 5 DAYS
     Route: 048

REACTIONS (1)
  - Death [Fatal]
